FAERS Safety Report 8543609-6 (Version None)
Quarter: 2012Q3

REPORT INFORMATION
  Report Type: 
  Country: None (occurrence: None)
  Receive Date: 20120727
  Receipt Date: 20120720
  Transmission Date: 20120928
  Serious: No
  Sender: FDA-Public Use
  Company Number: US-B.I. PHARMACEUTICALS,INC./RIDGEFIELD-2012-BP-16219BP

PATIENT
  Sex: Female
  Weight: 55 kg

DRUGS (12)
  1. FOSAMAX [Concomitant]
     Indication: OSTEOPENIA
     Dosage: 10 MG
     Route: 048
     Dates: start: 20101201
  2. ZYRTEC [Concomitant]
     Indication: HYPERSENSITIVITY
     Dosage: 10 MG
     Route: 048
     Dates: start: 20020101
  3. SPIRIVA [Suspect]
     Indication: CHRONIC OBSTRUCTIVE PULMONARY DISEASE
     Dosage: 18 MCG
     Route: 055
     Dates: start: 20110101
  4. KLOR-CON [Concomitant]
     Indication: SUPPLEMENTATION THERAPY
     Dosage: 10 MG
     Route: 048
     Dates: start: 20070101
  5. VITAMIN [Concomitant]
     Indication: PRODUCT USED FOR UNKNOWN INDICATION
     Route: 048
     Dates: start: 19970101
  6. COMBIVENT [Concomitant]
     Indication: CHRONIC OBSTRUCTIVE PULMONARY DISEASE
     Route: 055
     Dates: start: 20040101
  7. FUROSEMIDE [Concomitant]
     Indication: CARDIAC FAILURE CONGESTIVE
     Dosage: 20 MG
     Route: 048
     Dates: start: 20070101
  8. VERAPAMIL [Concomitant]
     Indication: HYPERTENSION
     Dosage: 360 MG
     Route: 048
     Dates: start: 20020101
  9. WARFARIN SODIUM [Concomitant]
     Indication: ATRIAL FIBRILLATION
     Route: 048
     Dates: start: 20030101
  10. SPIRIVA [Suspect]
     Route: 048
     Dates: start: 20120720, end: 20120720
  11. CALCIUM [Concomitant]
     Indication: PRODUCT USED FOR UNKNOWN INDICATION
     Route: 048
     Dates: start: 19970101
  12. DIGOXIN [Concomitant]
     Indication: ATRIAL FIBRILLATION
     Dosage: 0.125 MG
     Route: 048
     Dates: start: 20040101

REACTIONS (1)
  - INCORRECT ROUTE OF DRUG ADMINISTRATION [None]
